FAERS Safety Report 4628490-X (Version None)
Quarter: 2005Q2

REPORT INFORMATION
  Report Type: 
  Country: None (occurrence: None)
  Receive Date: 20050404
  Receipt Date: 20050322
  Transmission Date: 20051028
  Serious: Yes (Death, Hospitalization, Other)
  Sender: FDA-Public Use
  Company Number: 2005049315

PATIENT
  Age: 86 Year
  Sex: Female

DRUGS (4)
  1. VIAGRA [Suspect]
     Indication: PULMONARY HYPERTENSION
     Dosage: 100 MG (50 MG, 1 IN 1 D), ORAL
     Route: 048
     Dates: start: 20021201, end: 20050306
  2. FORMOTEROL (FORMOTEROL) [Concomitant]
  3. WARFARIN SODIUM [Concomitant]
  4. HEPARIN [Concomitant]

REACTIONS (10)
  - BACK PAIN [None]
  - BENIGN BONE NEOPLASM [None]
  - ERYSIPELAS [None]
  - HYPERKALAEMIA [None]
  - NEPHRITIS INTERSTITIAL [None]
  - OLIGURIA [None]
  - OVERDOSE [None]
  - RESPIRATORY FAILURE [None]
  - SEPSIS [None]
  - URINARY TRACT INFECTION [None]
